FAERS Safety Report 10104604 (Version 2)
Quarter: 2014Q3

REPORT INFORMATION
  Report Type: Spontaneous
  Country: US (occurrence: US)
  Receive Date: 20140424
  Receipt Date: 20140728
  Transmission Date: 20150326
  Serious: Yes (Hospitalization)
  Sender: FDA-Public Use
  Company Number: US-OTSUKA-US-2014-10771

PATIENT

DRUGS (4)
  1. ABILIFY [Concomitant]
     Active Substance: ARIPIPRAZOLE
     Indication: PRODUCT USED FOR UNKNOWN INDICATION
     Dosage: 10 MG MILLIGRAM(S), QD
     Route: 048
  2. ATIVAN [Concomitant]
     Active Substance: LORAZEPAM
     Indication: PRODUCT USED FOR UNKNOWN INDICATION
     Dosage: 1 MG MILLIGRAM(S), TID
     Route: 065
  3. ABILIFY MAINTENA [Suspect]
     Active Substance: ARIPIPRAZOLE
     Indication: SCHIZOPHRENIA
     Dosage: 300 MG MILLIGRAM(S), UNK
     Route: 030
     Dates: start: 201311
  4. LITHIUM                            /00033702/ [Concomitant]
     Indication: PRODUCT USED FOR UNKNOWN INDICATION
     Dosage: 300 MG MILLIGRAM(S), TID
     Route: 065

REACTIONS (4)
  - Catatonia [Recovered/Resolved]
  - Schizoaffective disorder [Recovered/Resolved]
  - Hypertension [Recovered/Resolved]
  - Treatment noncompliance [Unknown]

NARRATIVE: CASE EVENT DATE: 20140420
